FAERS Safety Report 5494792-0 (Version None)
Quarter: 2007Q4

REPORT INFORMATION
  Report Type: 
  Country: None (occurrence: None)
  Receive Date: 20071024
  Receipt Date: 20071015
  Transmission Date: 20080405
  Serious: Yes (Hospitalization)
  Sender: FDA-Public Use
  Company Number: BR-AVENTIS-200719651GDDC

PATIENT
  Age: 15 Year
  Sex: Female
  Weight: 60 kg

DRUGS (3)
  1. LANTUS [Suspect]
     Route: 058
     Dates: start: 20050101
  2. OPTIPEN (INSULIN PUMP) [Suspect]
     Route: 058
     Dates: start: 20050101
  3. HUMALOG [Concomitant]
     Route: 058

REACTIONS (4)
  - HOSPITALISATION [None]
  - HYPERGLYCAEMIA [None]
  - HYPOGLYCAEMIA [None]
  - OFF LABEL USE [None]
